FAERS Safety Report 10166798 (Version 2)
Quarter: 2014Q2

REPORT INFORMATION
  Report Type: Spontaneous
  Country: US (occurrence: US)
  Receive Date: 20140512
  Receipt Date: 20140520
  Transmission Date: 20141212
  Serious: Yes (Death)
  Sender: FDA-Public Use
  Company Number: US-SA-2014SA060185

PATIENT
  Age: 55 Year
  Sex: Male

DRUGS (7)
  1. RASBURICASE [Suspect]
     Indication: HYPERURICAEMIA
     Route: 065
  2. CARFILZOMIB [Suspect]
     Indication: PLASMA CELL MYELOMA
     Dosage: ON DAY 1 AND 2
     Route: 065
  3. BORTEZOMIB [Concomitant]
  4. LENALIDOMIDE [Concomitant]
  5. DEXAMETHASONE [Concomitant]
  6. DOXORUBICIN [Concomitant]
  7. ANTIEMETICS AND ANTINAUSEANTS [Concomitant]

REACTIONS (1)
  - Death [Fatal]
